FAERS Safety Report 6695453-2 (Version None)
Quarter: 2010Q2

REPORT INFORMATION
  Report Type: 
  Country: None (occurrence: None)
  Receive Date: 20100422
  Receipt Date: 20100422
  Transmission Date: 20101027
  Serious: Yes (Other)
  Sender: FDA-Public Use
  Company Number: None

PATIENT
  Age: 76 Year
  Sex: Female
  Weight: 99.7913 kg

DRUGS (4)
  1. MOBIC [Suspect]
     Indication: ARTHRITIS
     Dosage: 7.5 MG 1 AM
     Dates: start: 20100318
  2. MOBIC [Suspect]
     Indication: ARTHRITIS
     Dosage: 7.5 MG 1 AM
     Dates: start: 20100319
  3. MOBIC [Suspect]
     Indication: ARTHRITIS
     Dosage: 7.5 MG 1 AM
     Dates: start: 20100320
  4. MOBIC [Suspect]
     Indication: ARTHRITIS
     Dosage: 7.5 MG 1 AM
     Dates: start: 20100325

REACTIONS (1)
  - INSOMNIA [None]
